FAERS Safety Report 18014368 (Version 1)
Quarter: 2020Q3

REPORT INFORMATION
  Report Type: Spontaneous
  Country: HR (occurrence: HR)
  Receive Date: 20200713
  Receipt Date: 20200713
  Transmission Date: 20201103
  Serious: Yes (Hospitalization)
  Sender: FDA-Public Use
  Company Number: HR-PFIZER INC-2020267311

PATIENT
  Age: 23 Year
  Sex: Male
  Weight: 67 kg

DRUGS (1)
  1. ZESSLY [Suspect]
     Active Substance: INFLIXIMAB
     Indication: CROHN^S DISEASE
     Dosage: 400 MG (3 DOZA LIJEKA U ZIVOTU)
     Route: 042
     Dates: start: 20200401, end: 20200617

REACTIONS (2)
  - Choking [Recovered/Resolved]
  - Anaphylactic reaction [Recovered/Resolved]

NARRATIVE: CASE EVENT DATE: 20200617
